FAERS Safety Report 13828642 (Version 1)
Quarter: 2017Q3

REPORT INFORMATION
  Report Type: Spontaneous
  Country: US (occurrence: US)
  Receive Date: 20170802
  Receipt Date: 20170802
  Transmission Date: 20171127
  Serious: Yes (Other)
  Sender: FDA-Public Use
  Company Number: None

PATIENT
  Age: 7 Year
  Sex: Male
  Weight: 22.5 kg

DRUGS (4)
  1. MIRALAX [Suspect]
     Active Substance: POLYETHYLENE GLYCOL 3350
     Indication: CONSTIPATION
     Dosage: ?          QUANTITY:1 CAPFUL;?
     Route: 048
     Dates: start: 20170407, end: 20170414
  2. CALCIUM VITAMIN [Concomitant]
  3. OMEGA 3 VITAMIN [Concomitant]
  4. MULTIVITAMIN [Concomitant]
     Active Substance: VITAMINS

REACTIONS (10)
  - Amnesia [None]
  - Violence-related symptom [None]
  - Haematochezia [None]
  - Unresponsive to stimuli [None]
  - Diarrhoea [None]
  - Anger [None]
  - Psychomotor hyperactivity [None]
  - Abnormal behaviour [None]
  - Restlessness [None]
  - Aggression [None]

NARRATIVE: CASE EVENT DATE: 20170412
